FAERS Safety Report 17027350 (Version 1)
Quarter: 2019Q4

REPORT INFORMATION
  Report Type: Report from Study
  Country: US (occurrence: US)
  Receive Date: 20191113
  Receipt Date: 20191113
  Transmission Date: 20200122
  Serious: No
  Sender: FDA-Public Use
  Company Number: NVSC2019US034613

PATIENT
  Sex: Female

DRUGS (1)
  1. ENTRESTO [Suspect]
     Active Substance: SACUBITRIL\VALSARTAN
     Indication: EJECTION FRACTION DECREASED
     Dosage: 1 DF, BID, 100 MG (49 MG OF SACUBITRIL, 51 MG OF VALSARTAN)
     Route: 048
     Dates: start: 201907

REACTIONS (2)
  - Fatigue [Unknown]
  - Product use in unapproved indication [Unknown]
